FAERS Safety Report 18582307 (Version 3)
Quarter: 2020Q4

REPORT INFORMATION
  Report Type: Report from Study
  Country: None (occurrence: ES)
  Receive Date: 20201204
  Receipt Date: 20201231
  Transmission Date: 20210114
  Serious: Yes (Other)
  Sender: FDA-Public Use
  Company Number: ES-ABBVIE-20K-144-3670626-00

PATIENT
  Sex: Male
  Weight: 60 kg

DRUGS (2)
  1. DUODOPA [Suspect]
     Active Substance: CARBIDOPA\LEVODOPA
  2. DUODOPA [Suspect]
     Active Substance: CARBIDOPA\LEVODOPA
     Indication: PARKINSON^S DISEASE
     Dosage: MORNING DOSE 13, CONTINUOUS DOSE 2, EXTRA DOSE 3, 16 H/DAY
     Route: 050
     Dates: start: 20200125

REACTIONS (6)
  - Inadequate diet [Unknown]
  - Dysphagia [Not Recovered/Not Resolved]
  - Weight decreased [Recovered/Resolved]
  - Productive cough [Not Recovered/Not Resolved]
  - Aspiration [Unknown]
  - Hypophagia [Unknown]

NARRATIVE: CASE EVENT DATE: 2020
